FAERS Safety Report 19495790 (Version 2)
Quarter: 2021Q3

REPORT INFORMATION
  Report Type: Spontaneous
  Country: DE (occurrence: DE)
  Receive Date: 20210706
  Receipt Date: 20210710
  Transmission Date: 20211014
  Serious: Yes (Hospitalization)
  Sender: FDA-Public Use
  Company Number: NVSC2021DE149447

PATIENT
  Age: 72 Year
  Sex: Male

DRUGS (2)
  1. LEVOTHYROXINUM NATRICUM [Concomitant]
     Indication: PRODUCT USED FOR UNKNOWN INDICATION
     Dosage: 75 UG, QD
     Route: 048
  2. LISINOPRIL/HYDROCHLOORTHIAZIDE [Suspect]
     Active Substance: HYDROCHLOROTHIAZIDE\LISINOPRIL
     Indication: PRODUCT USED FOR UNKNOWN INDICATION
     Dosage: 1 DF, QD (12.5 MG OF HYDROCHLOROTHIAZIDE AND 20 MG OF LISINOPRIL DIHYDRATE)
     Route: 048

REACTIONS (5)
  - Pyrexia [Unknown]
  - Renal impairment [Unknown]
  - General physical health deterioration [Unknown]
  - Prostatic specific antigen increased [Unknown]
  - Urinary incontinence [Unknown]
